FAERS Safety Report 12587450 (Version 4)
Quarter: 2017Q2

REPORT INFORMATION
  Report Type: Report from Study
  Country: BR (occurrence: BR)
  Receive Date: 20160725
  Receipt Date: 20170414
  Transmission Date: 20170830
  Serious: Yes (Other)
  Sender: FDA-Public Use
  Company Number: PHHY2016BR100927

PATIENT
  Sex: Female
  Weight: 82 kg

DRUGS (3)
  1. SANDOSTATIN LAR DEPOT [Suspect]
     Active Substance: OCTREOTIDE ACETATE
     Indication: ACROMEGALY
     Dosage: 30 MG, QMO (ONCE A MONTH)
     Route: 048
     Dates: start: 201501
  2. CABERGOLINE. [Concomitant]
     Active Substance: CABERGOLINE
     Indication: ACROMEGALY
     Dosage: 0.5 DF, QW2 (HALF TABLET ON MONDY AND OTHER HALF ON THURSDAY)
     Route: 048
  3. LOSARTAN. [Concomitant]
     Active Substance: LOSARTAN
     Indication: HYPERTENSION
     Dosage: 2 DF, QD
     Route: 048
     Dates: start: 2015

REACTIONS (14)
  - Blood triglycerides increased [Unknown]
  - Weight decreased [Not Recovered/Not Resolved]
  - Nervousness [Not Recovered/Not Resolved]
  - Tremor [Unknown]
  - Anxiety [Not Recovered/Not Resolved]
  - Fumbling [Unknown]
  - Nervous system disorder [Unknown]
  - Neoplasm progression [Unknown]
  - Hyperhidrosis [Not Recovered/Not Resolved]
  - Menorrhagia [Unknown]
  - Heart rate increased [Not Recovered/Not Resolved]
  - Incorrect route of drug administration [Unknown]
  - Yellow skin [Not Recovered/Not Resolved]
  - Stress [Unknown]
